FAERS Safety Report 15888713 (Version 1)
Quarter: 2019Q1

REPORT INFORMATION
  Report Type: Spontaneous
  Country: FR (occurrence: FR)
  Receive Date: 20190129
  Receipt Date: 20190129
  Transmission Date: 20190417
  Serious: Yes (Other)
  Sender: FDA-Public Use
  Company Number: None

PATIENT
  Age: 51 Year
  Sex: Female
  Weight: 64 kg

DRUGS (3)
  1. PREDNISOLONE. [Suspect]
     Active Substance: PREDNISOLONE
     Indication: COUGH
     Dosage: ?          QUANTITY:3 SOLUBLE TABLETS;?
     Route: 048
     Dates: start: 20190124, end: 20190128
  2. VITAMIN D [Concomitant]
     Active Substance: CHOLECALCIFEROL
  3. BRINTELLIX [Concomitant]
     Active Substance: VORTIOXETINE HYDROBROMIDE

REACTIONS (8)
  - Rhinalgia [None]
  - Malaise [None]
  - Dry throat [None]
  - Headache [None]
  - Vomiting [None]
  - Nasal dryness [None]
  - Sensitive skin [None]
  - Oropharyngeal pain [None]

NARRATIVE: CASE EVENT DATE: 20190128
